FAERS Safety Report 25883848 (Version 1)
Quarter: 2025Q4

REPORT INFORMATION
  Report Type: Spontaneous
  Country: EU (occurrence: EU)
  Receive Date: 20251006
  Receipt Date: 20251006
  Transmission Date: 20260118
  Serious: Yes (Life-Threatening, Hospitalization, Other)
  Sender: SANOFI AVENTIS
  Company Number: None

PATIENT
  Age: 81 Year
  Sex: Male

DRUGS (38)
  1. PLAVIX [Suspect]
     Active Substance: CLOPIDOGREL BISULFATE
     Indication: Acute myocardial infarction
     Dosage: 300 MG
     Dates: start: 20220125, end: 20220203
  2. WARFARIN SODIUM [Suspect]
     Active Substance: WARFARIN SODIUM
     Indication: Atrial fibrillation
     Dosage: UNK (DOSAGE: INR-DEPENDENT DOSAGE)
     Route: 048
     Dates: start: 20220125, end: 20220203
  3. WARFARIN SODIUM [Suspect]
     Active Substance: WARFARIN SODIUM
     Indication: Acute myocardial infarction
  4. ASPIRIN [Suspect]
     Active Substance: ASPIRIN
     Indication: Acute myocardial infarction
     Dosage: 75 MG
     Dates: start: 20220125, end: 20220203
  5. HEPARIN [Concomitant]
     Active Substance: HEPARIN SODIUM
     Indication: Acute myocardial infarction
     Dosage: UNK (DOSAGE: 25000 IU/5 ML)
     Dates: start: 20220125, end: 20220203
  6. SODIUM CHLORIDE [Concomitant]
     Active Substance: SODIUM CHLORIDE
     Indication: Acute myocardial infarction
     Dosage: UNK (DOSAGE: 9 MG/ML.)
     Route: 042
     Dates: start: 20220125, end: 20220203
  7. CLOPIDOGREL [Concomitant]
     Active Substance: CLOPIDOGREL BISULFATE
     Indication: Acute myocardial infarction
     Dosage: 75 MG
     Dates: start: 20220125, end: 20220203
  8. FUROSEMIDE [Concomitant]
     Active Substance: FUROSEMIDE
     Indication: Acute myocardial infarction
     Dosage: 40 MG
     Dates: start: 20220125, end: 20220203
  9. LIDOCAINE HYDROCHLORIDE [Concomitant]
     Active Substance: LIDOCAINE HYDROCHLORIDE
     Indication: Acute myocardial infarction
     Dosage: UNK (DOSAGE: 200 MG/20 ML.)
     Dates: start: 20220125, end: 20220203
  10. BUTYLSCOPOLAMINE [Concomitant]
     Active Substance: BUTYLSCOPOLAMINE
     Indication: Acute myocardial infarction
     Dosage: UNK (DOSAGE: 20 MG/1 ML.)
     Dates: start: 20220125, end: 20220203
  11. DIAZEPAM [Concomitant]
     Active Substance: DIAZEPAM
     Indication: Acute myocardial infarction
     Dosage: UNK 9DOSAGE: 10 MG/ 2 ML.)
     Dates: start: 20220125, end: 20220303
  12. Noradrenalin kalceks [Concomitant]
     Indication: Acute myocardial infarction
     Dosage: UNK (DOSAGE: 4 MG/ 4 ML)
     Route: 042
     Dates: start: 20220125, end: 20220203
  13. ATROPINE SULFATE [Concomitant]
     Active Substance: ATROPINE SULFATE
     Indication: Acute myocardial infarction
     Dosage: UNK (DOSAGE: 1 MG/ 1 ML)
     Dates: start: 20220125, end: 20220203
  14. NOVORAPID [Concomitant]
     Active Substance: INSULIN ASPART
     Indication: Acute myocardial infarction
     Dosage: UNK
     Dates: start: 20220125, end: 20220203
  15. Glukoza [Concomitant]
     Indication: Acute myocardial infarction
     Dosage: UNK
     Route: 042
     Dates: start: 20220125, end: 20220203
  16. EPINEPHRINE [Concomitant]
     Active Substance: EPINEPHRINE
     Indication: Acute myocardial infarction
     Dosage: UNK (DOSAGE: 1 MG/1 ML)
     Dates: start: 20220125, end: 20220203
  17. ESOMEPRAZOLE [Concomitant]
     Active Substance: ESOMEPRAZOLE
     Indication: Acute myocardial infarction
     Dosage: 40 MG
     Dates: start: 20220125, end: 20220203
  18. QUETIAPINE FUMARATE [Concomitant]
     Active Substance: QUETIAPINE FUMARATE
     Indication: Acute myocardial infarction
     Dosage: 25 MG
     Dates: start: 20220125, end: 20220203
  19. FENTANYL [Concomitant]
     Active Substance: FENTANYL
     Indication: Acute myocardial infarction
     Dosage: UNK (DOSAGE: 0.05 MG/ML)
     Dates: start: 20220125, end: 20220203
  20. LIDOCAINE [Concomitant]
     Active Substance: LIDOCAINE
     Indication: Acute myocardial infarction
     Dosage: UNK (DOSAGE: 38 G.)
     Dates: start: 20220125, end: 20220203
  21. MIDAZOLAM HYDROCHLORIDE [Concomitant]
     Active Substance: MIDAZOLAM HYDROCHLORIDE
     Indication: Acute myocardial infarction
     Dosage: UNK (DOSAGE: 5 MG/5 ML)
     Dates: start: 20220125, end: 20220203
  22. OXYCODONE HYDROCHLORIDE [Concomitant]
     Active Substance: OXYCODONE HYDROCHLORIDE
     Indication: Acute myocardial infarction
     Dosage: UNK (DOSAGE: 10 MG/ML.)
     Route: 042
     Dates: start: 20220125, end: 20220203
  23. NEBIVOLOL [Concomitant]
     Active Substance: NEBIVOLOL
     Indication: Acute myocardial infarction
     Dosage: 5 MG
     Dates: start: 20220125, end: 20220203
  24. CALCIUM CHLORIDE\MAGNESIUM CHLORIDE\POTASSIUM CHLORIDE\SODIUM ACETATE\ [Concomitant]
     Active Substance: CALCIUM CHLORIDE\MAGNESIUM CHLORIDE\POTASSIUM CHLORIDE\SODIUM ACETATE\SODIUM CHLORIDE\SODIUM CITRATE
     Indication: Acute myocardial infarction
     Dosage: UNK
     Route: 042
     Dates: start: 20220125, end: 20220203
  25. NITROGLYCERIN [Concomitant]
     Active Substance: NITROGLYCERIN
     Indication: Acute myocardial infarction
     Dosage: UNK (DOSAGE: 1 MG/ML)
     Route: 042
     Dates: start: 20220125, end: 20220203
  26. CEFTRIAXONE [Concomitant]
     Active Substance: CEFTRIAXONE
     Indication: Acute myocardial infarction
     Dosage: UNK
     Dates: start: 20220125, end: 20220203
  27. Ozzion [Concomitant]
     Indication: Acute myocardial infarction
     Dosage: 0.04 G (0.040G)
     Dates: start: 20220125, end: 20220203
  28. DEXAMETHASONE [Concomitant]
     Active Substance: DEXAMETHASONE
     Indication: Acute myocardial infarction
     Dosage: UNK (DOSAGE: 4MG/ML)
     Route: 042
     Dates: start: 20220125, end: 20220203
  29. DOBUTAMINE [Concomitant]
     Active Substance: DOBUTAMINE HYDROCHLORIDE
     Indication: Acute myocardial infarction
     Dosage: 250 MG
     Route: 042
     Dates: start: 20220125, end: 20220203
  30. FUROSEMIDE [Concomitant]
     Active Substance: FUROSEMIDE
     Indication: Acute myocardial infarction
     Dosage: UNK (DOSAGE: 20 MG/ 2 ML)
     Dates: start: 20220125, end: 20220203
  31. Glukoza [Concomitant]
     Indication: Acute myocardial infarction
     Dosage: UNK (DOSAGE: 100 MG/ML KABIPAC.)
     Route: 042
     Dates: start: 20220125, end: 20220203
  32. MIDAZOLAM [Concomitant]
     Active Substance: MIDAZOLAM
     Indication: Acute myocardial infarction
     Dosage: UNK (DOSAGE: 5 MG/ML)
     Dates: start: 20220125, end: 20220203
  33. THEOSPIREX [THEOPHYLLINE] [Concomitant]
     Indication: Acute myocardial infarction
     Dosage: UNK (DOSAGE: 0,2G/10ML.)
  34. DIAZEPAM [Concomitant]
     Active Substance: DIAZEPAM
     Indication: Acute myocardial infarction
     Dosage: 5 MG
     Dates: start: 20220125, end: 20220203
  35. DIAZEPAM [Concomitant]
     Active Substance: DIAZEPAM
     Indication: Acute myocardial infarction
     Dosage: UNK
     Dates: start: 20220125, end: 20220203
  36. EUPHYLLINE [THEOPHYLLINE] [Concomitant]
     Indication: Acute myocardial infarction
     Dosage: UNK (DOSAGE: 20 MG/ML)
     Dates: start: 20220125, end: 20220203
  37. ASPIRIN [Concomitant]
     Active Substance: ASPIRIN
     Indication: Acute myocardial infarction
     Dosage: 0.15 G
     Dates: start: 20220125, end: 20220203
  38. ATORVASTATIN CALCIUM [Concomitant]
     Active Substance: ATORVASTATIN CALCIUM
     Indication: Acute myocardial infarction
     Dosage: 40 MG
     Dates: start: 20220125, end: 20220203

REACTIONS (3)
  - Neoplasm [Recovering/Resolving]
  - Anaemia [Recovering/Resolving]
  - Melaena [Recovering/Resolving]

NARRATIVE: CASE EVENT DATE: 20220201
